FAERS Safety Report 23949025 (Version 1)
Quarter: 2024Q2

REPORT INFORMATION
  Report Type: Report from Study
  Country: CA (occurrence: CA)
  Receive Date: 20240607
  Receipt Date: 20240607
  Transmission Date: 20240716
  Serious: Yes (Other)
  Sender: FDA-Public Use
  Company Number: CA-TAKEDA-2024TUS057144

PATIENT
  Sex: Female

DRUGS (8)
  1. VEDOLIZUMAB [Suspect]
     Active Substance: VEDOLIZUMAB
     Indication: Crohn^s disease
     Dosage: 300 MILLIGRAM
     Route: 042
     Dates: start: 20190827
  2. ASACOL [Concomitant]
     Active Substance: MESALAMINE
     Dosage: UNK
  3. ENTOCORT [Concomitant]
     Active Substance: BUDESONIDE
     Dosage: UNK
  4. Cortiment [Concomitant]
     Dosage: UNK
  5. BUDESONIDE [Concomitant]
     Active Substance: BUDESONIDE
     Dosage: UNK
  6. PREDNISONE [Concomitant]
     Active Substance: PREDNISONE
     Dosage: UNK
  7. Salofalk [Concomitant]
     Dosage: UNK
  8. MESALAMINE [Concomitant]
     Active Substance: MESALAMINE
     Dosage: UNK
     Route: 048
     Dates: start: 20170517

REACTIONS (1)
  - Diabetes mellitus [Recovering/Resolving]
